FAERS Safety Report 15577866 (Version 7)
Quarter: 2020Q2

REPORT INFORMATION
  Report Type: Spontaneous
  Country: US (occurrence: US)
  Receive Date: 20181102
  Receipt Date: 20200529
  Transmission Date: 20200713
  Serious: Yes (Hospitalization)
  Sender: FDA-Public Use
  Company Number: US-PFIZER INC-2018447415

PATIENT
  Age: 78 Year
  Sex: Male

DRUGS (1)
  1. XELJANZ XR [Suspect]
     Active Substance: TOFACITINIB CITRATE
     Indication: RHEUMATOID ARTHRITIS
     Dosage: 11 MG, 1X/DAY (ONCE DAILY)
     Route: 048
     Dates: start: 201809

REACTIONS (13)
  - Abdominal pain upper [Unknown]
  - Back pain [Unknown]
  - Productive cough [Unknown]
  - Pre-existing condition improved [Unknown]
  - Chest pain [Unknown]
  - Blood pressure fluctuation [Unknown]
  - Pain in extremity [Unknown]
  - Dyspnoea [Unknown]
  - Pain [Unknown]
  - Epistaxis [Unknown]
  - Product dose omission [Unknown]
  - Therapeutic response unexpected [Unknown]
  - Arthralgia [Recovering/Resolving]

NARRATIVE: CASE EVENT DATE: 20181218
